FAERS Safety Report 7102070-9 (Version None)
Quarter: 2010Q4

REPORT INFORMATION
  Report Type: 
  Country: None (occurrence: None)
  Receive Date: 20101115
  Receipt Date: 20101101
  Transmission Date: 20110411
  Serious: Yes (Hospitalization)
  Sender: FDA-Public Use
  Company Number: US-ROCHE-738524

PATIENT
  Sex: Male
  Weight: 95.6 kg

DRUGS (4)
  1. BEVACIZUMAB [Suspect]
     Route: 042
     Dates: start: 20100110
  2. DOCETAXEL [Suspect]
     Route: 042
     Dates: start: 20100110
  3. TOPROL-XL [Concomitant]
     Dates: start: 20080201
  4. SIMVASTATIN [Concomitant]
     Dosage: FREQUENCY: QHS
     Dates: start: 20080201

REACTIONS (7)
  - ABSCESS [None]
  - EFFUSION [None]
  - MUSCLE HAEMORRHAGE [None]
  - MUSCLE RUPTURE [None]
  - MYOSITIS [None]
  - PYREXIA [None]
  - STAPHYLOCOCCUS TEST POSITIVE [None]
